FAERS Safety Report 5484600-6 (Version None)
Quarter: 2007Q4

REPORT INFORMATION
  Report Type: 
  Country: None (occurrence: None)
  Receive Date: 20071012
  Receipt Date: 20071001
  Transmission Date: 20080405
  Serious: Yes (Hospitalization, Disabling, Other)
  Sender: FDA-Public Use
  Company Number: FR-PFIZER INC-2007061691

PATIENT
  Sex: Male
  Weight: 85 kg

DRUGS (4)
  1. CELEBREX [Suspect]
     Indication: TENDONITIS
  2. CELEBREX [Suspect]
     Indication: ARTHRALGIA
  3. CELEBREX [Suspect]
     Indication: MUSCULOSKELETAL PAIN
  4. VIOXX [Suspect]
     Dates: start: 20040903

REACTIONS (4)
  - BEHCET'S SYNDROME [None]
  - ERECTILE DYSFUNCTION [None]
  - IDIOPATHIC THROMBOCYTOPENIC PURPURA [None]
  - LIBIDO DECREASED [None]
